FAERS Safety Report 9356197 (Version 1)
Quarter: 2013Q2

REPORT INFORMATION
  Report Type: Spontaneous
  Country: US (occurrence: US)
  Receive Date: 20130619
  Receipt Date: 20130619
  Transmission Date: 20140414
  Serious: Yes (Other)
  Sender: FDA-Public Use
  Company Number: US-PFIZER INC-2013180750

PATIENT
  Age: 17 Year
  Sex: Male
  Weight: 63.5 kg

DRUGS (7)
  1. DEPO-TESTOSTERONE [Suspect]
     Indication: HORMONE REPLACEMENT THERAPY
     Dosage: 1 ML, 2X/MONTH
     Dates: start: 2004, end: 201305
  2. VALTREX [Suspect]
     Indication: PROPHYLAXIS
     Dosage: 500 MG, 2X/DAY
  3. KEPPRA [Concomitant]
     Indication: CONVULSION
     Dosage: 1250 MG AT 9 AM AND 1000 MG AT 9 PM
  4. LEVOTHYROXINE [Concomitant]
     Indication: THYROID DISORDER
     Dosage: 88 UG, 1X/DAY
  5. DDAVP [Concomitant]
     Indication: DIABETES INSIPIDUS
     Dosage: 0.5MG AT 6 AM, 0.1MG AT 3 PM AND 0.4 MG AT 9 PM
  6. GABAPENTIN [Concomitant]
     Indication: NEURALGIA
     Dosage: 1000 MG AT 6 AM, 200 MG AT 3 PM AND 1000MG AT 9 PM
  7. BACLOFEN [Concomitant]
     Indication: MUSCLE STRAIN
     Dosage: 10 MG, 2X/DAY

REACTIONS (1)
  - Neoplasm [Unknown]
